FAERS Safety Report 5923992-8 (Version None)
Quarter: 2008Q4

REPORT INFORMATION
  Report Type: 
  Country: None (occurrence: None)
  Receive Date: 20081020
  Receipt Date: 20081009
  Transmission Date: 20090506
  Serious: Yes (Other)
  Sender: FDA-Public Use
  Company Number: PHBS2008ES06016

PATIENT
  Age: 12 Year
  Sex: Female

DRUGS (7)
  1. CYCLOSPORINE [Suspect]
     Indication: STEM CELL TRANSPLANT
     Dosage: UNK
     Route: 065
     Dates: start: 19990101
  2. PREDNISONE TAB [Suspect]
     Indication: ACUTE GRAFT VERSUS HOST DISEASE IN SKIN
     Route: 065
  3. TACROLIMUS [Suspect]
     Indication: ACUTE GRAFT VERSUS HOST DISEASE IN SKIN
  4. MYCOPHENOLATE MOFETIL [Suspect]
     Indication: ACUTE GRAFT VERSUS HOST DISEASE IN SKIN
  5. LEUKOTAC (INOLIMOMAB) [Suspect]
     Indication: ACUTE GRAFT VERSUS HOST DISEASE IN SKIN
  6. CYCLOPHOSPHAMIDE [Concomitant]
     Indication: STEM CELL TRANSPLANT
  7. IRRADIATION [Concomitant]
     Indication: STEM CELL TRANSPLANT

REACTIONS (12)
  - ACUTE GRAFT VERSUS HOST DISEASE IN SKIN [None]
  - BONE INFARCTION [None]
  - CHRONIC GRAFT VERSUS HOST DISEASE [None]
  - DEPRESSION [None]
  - DIABETES MELLITUS [None]
  - GLUCOSE TOLERANCE IMPAIRED [None]
  - NEURALGIA [None]
  - RENAL FAILURE [None]
  - SKIN DISORDER [None]
  - SKIN GRAFT [None]
  - SKIN GRAFT REJECTION [None]
  - VENOUS THROMBOSIS [None]
